FAERS Safety Report 23217807 (Version 3)
Quarter: 2024Q1

REPORT INFORMATION
  Report Type: Spontaneous
  Country: PT (occurrence: PT)
  Receive Date: 20231122
  Receipt Date: 20240117
  Transmission Date: 20240410
  Serious: Yes (Hospitalization, Other)
  Sender: FDA-Public Use
  Company Number: PT-009507513-2311PRT001891

PATIENT
  Age: 47 Year
  Sex: Female

DRUGS (9)
  1. PEMBROLIZUMAB [Suspect]
     Active Substance: PEMBROLIZUMAB
     Dosage: ADMINISTERED IN PORTUGAL
     Dates: start: 20230112, end: 20230112
  2. PEMBROLIZUMAB [Suspect]
     Active Substance: PEMBROLIZUMAB
     Dosage: ADMINISTERED IN SPAIN
     Dates: start: 20230201, end: 20230201
  3. PEMBROLIZUMAB [Suspect]
     Active Substance: PEMBROLIZUMAB
     Dosage: ADMINISTERED IN SPAIN
     Dates: start: 20230201, end: 20230201
  4. PEMBROLIZUMAB [Suspect]
     Active Substance: PEMBROLIZUMAB
     Dosage: ADMINISTERED IN SPAIN
     Dates: start: 20230222, end: 20230222
  5. PEMBROLIZUMAB [Suspect]
     Active Substance: PEMBROLIZUMAB
     Dosage: ADMINISTERED IN SPAIN
     Dates: start: 20230315, end: 20230315
  6. PEMBROLIZUMAB [Suspect]
     Active Substance: PEMBROLIZUMAB
     Dosage: ADMINISTERED IN SPAIN
     Dates: start: 20230405, end: 20230405
  7. PEMBROLIZUMAB [Suspect]
     Active Substance: PEMBROLIZUMAB
     Dosage: ADMINISTERED IN SPAIN (LAS TREATMENT BEFORE SURGERY)
     Dates: start: 20230426, end: 20230426
  8. CYCLOPHOSPHAMIDE [Suspect]
     Active Substance: CYCLOPHOSPHAMIDE
     Dosage: UNK
     Dates: start: 20230305
  9. EPIRUBICIN [Suspect]
     Active Substance: EPIRUBICIN
     Dosage: UNK
     Dates: start: 20230305

REACTIONS (5)
  - Pneumonitis [Recovered/Resolved with Sequelae]
  - Radiotherapy [Unknown]
  - White blood cell count decreased [Recovered/Resolved]
  - Magnesium deficiency [Recovering/Resolving]
  - Inappropriate schedule of product administration [Unknown]

NARRATIVE: CASE EVENT DATE: 20230101
